FAERS Safety Report 10873798 (Version 1)
Quarter: 2015Q1

REPORT INFORMATION
  Report Type: Spontaneous
  Country: US (occurrence: US)
  Receive Date: 20150227
  Receipt Date: 20150227
  Transmission Date: 20150721
  Serious: Yes (Other)
  Sender: FDA-Public Use
  Company Number: US-SA-2015SA024203

PATIENT

DRUGS (1)
  1. LANTUS [Suspect]
     Active Substance: INSULIN GLARGINE
     Indication: DIABETES MELLITUS
     Dosage: DOSE: 60 U DOSES SPLIT DOSE:60 UNIT(S)
     Route: 065

REACTIONS (4)
  - Paralysis [Unknown]
  - Blood glucose abnormal [Unknown]
  - Glycosylated haemoglobin [Unknown]
  - Drug administration error [Unknown]
